FAERS Safety Report 18756527 (Version 1)
Quarter: 2021Q1

REPORT INFORMATION
  Report Type: Report from Study
  Country: None (occurrence: BR)
  Receive Date: 20210119
  Receipt Date: 20210119
  Transmission Date: 20210419
  Serious: Yes (Death)
  Sender: FDA-Public Use
  Company Number: BR-ABBVIE-21K-020-3736625-00

PATIENT
  Age: 70 Year
  Sex: Male

DRUGS (1)
  1. IMBRUVICA [Suspect]
     Active Substance: IBRUTINIB
     Indication: MANTLE CELL LYMPHOMA
     Route: 048
     Dates: start: 20170701

REACTIONS (3)
  - Mantle cell lymphoma [Fatal]
  - Lymphocytosis [Unknown]
  - Diarrhoea [Unknown]
